FAERS Safety Report 7343498-1 (Version None)
Quarter: 2011Q1

REPORT INFORMATION
  Report Type: 
  Country: None (occurrence: None)
  Receive Date: 20110310
  Receipt Date: 20100301
  Transmission Date: 20110831
  Serious: No
  Sender: FDA-Public Use
  Company Number: A0847945A

PATIENT
  Age: 63 Year
  Sex: Female

DRUGS (5)
  1. NICODERM CQ [Suspect]
  2. NICORETTE [Suspect]
  3. NICOTINE POLACRILEX [Suspect]
  4. NICORETTE [Suspect]
  5. NICOTINE POLACRILEX [Suspect]

REACTIONS (5)
  - DRUG ADMINISTRATION ERROR [None]
  - THIRST [None]
  - DRUG INEFFECTIVE [None]
  - NICOTINE DEPENDENCE [None]
  - PRODUCT QUALITY ISSUE [None]
